FAERS Safety Report 20484527 (Version 4)
Quarter: 2022Q1

REPORT INFORMATION
  Report Type: Report from Study
  Country: US (occurrence: US)
  Receive Date: 20220217
  Receipt Date: 20220325
  Transmission Date: 20220423
  Serious: Yes (Life-Threatening, Hospitalization)
  Sender: FDA-Public Use
  Company Number: US-JNJFOC-20220230330

PATIENT
  Age: 20 Year
  Sex: Female
  Weight: 102.15 kg

DRUGS (12)
  1. SPRAVATO [Suspect]
     Active Substance: ESKETAMINE
     Indication: Depression
     Dosage: ^1 DOSE^
     Dates: start: 20211014, end: 20211014
  2. SPRAVATO [Suspect]
     Active Substance: ESKETAMINE
     Dosage: ^2 DOSES^
     Dates: start: 20211021, end: 20211028
  3. SPRAVATO [Suspect]
     Active Substance: ESKETAMINE
     Dosage: ^1 DOSE^
     Dates: start: 20211102, end: 20211102
  4. SPRAVATO [Suspect]
     Active Substance: ESKETAMINE
     Dosage: ^9 DOSES^
     Dates: start: 20211104, end: 20220127
  5. SPRAVATO [Suspect]
     Active Substance: ESKETAMINE
     Dosage: ^1 DOSE^
     Dates: start: 20220210, end: 20220210
  6. SPRAVATO [Suspect]
     Active Substance: ESKETAMINE
     Dates: start: 20220303
  7. CYMBALTA [Concomitant]
     Active Substance: DULOXETINE HYDROCHLORIDE
     Indication: Depression
  8. CYMBALTA [Concomitant]
     Active Substance: DULOXETINE HYDROCHLORIDE
     Indication: Anxiety
  9. REXULTI [Concomitant]
     Active Substance: BREXPIPRAZOLE
     Indication: Depression
  10. LUNESTA [Concomitant]
     Active Substance: ESZOPICLONE
     Indication: Insomnia
  11. XANAX [Concomitant]
     Active Substance: ALPRAZOLAM
     Indication: Anxiety
     Dosage: 1-2 MG NIGHTLY
  12. ATIVAN [Concomitant]
     Active Substance: LORAZEPAM
     Indication: Anxiety

REACTIONS (2)
  - Suicidal ideation [Recovered/Resolved]
  - Dissociation [Recovered/Resolved]

NARRATIVE: CASE EVENT DATE: 20220210
